FAERS Safety Report 15089271 (Version 1)
Quarter: 2018Q2

REPORT INFORMATION
  Report Type: Spontaneous
  Country: US (occurrence: US)
  Receive Date: 20180629
  Receipt Date: 20180629
  Transmission Date: 20180711
  Serious: No
  Sender: FDA-Public Use
  Company Number: US-BAYER-2018-118749

PATIENT
  Sex: Male
  Weight: 73 kg

DRUGS (2)
  1. CITRUCEL [Concomitant]
     Active Substance: METHYLCELLULOSE (4000 MPA.S)
     Dosage: UNK
  2. MIRALAX [Suspect]
     Active Substance: POLYETHYLENE GLYCOL 3350
     Indication: GASTROINTESTINAL DISORDER
     Dosage: UNK(A CAPFUL DOSE)
     Route: 048
     Dates: end: 20180620

REACTIONS (3)
  - Pain in extremity [Unknown]
  - Product prescribing issue [Unknown]
  - Product use issue [Unknown]
